FAERS Safety Report 8554978-5 (Version None)
Quarter: 2012Q3

REPORT INFORMATION
  Report Type: 
  Country: None (occurrence: None)
  Receive Date: 20120731
  Receipt Date: 20070828
  Transmission Date: 20120928
  Serious: Yes (Death, Other)
  Sender: FDA-Public Use
  Company Number: CO-PFIZER INC-2012182863

PATIENT
  Age: 62 Year
  Sex: Female

DRUGS (7)
  1. LIPITOR [Suspect]
     Indication: DYSLIPIDAEMIA
     Dosage: 10 MG, 1X/DAY
  2. ACETYLSALICYLIC ACID [Concomitant]
     Dosage: 100 MG, 1X/DAY
  3. QUINAPRIL AND HYDROCHLOROTHIAZIDE [Suspect]
     Indication: HYPERTENSION
     Dosage: QUINAPRIL/HYDROCHLOROTHIAZIDE 20/12.5 MG  1X/DAY
  4. METFORMIN [Concomitant]
     Dosage: 850 MG, 2X/DAY
  5. GLIBENCLAMIDE [Concomitant]
     Dosage: 5 MG, 1X/DAY
  6. METOPROLOL TARTRATE [Concomitant]
     Dosage: 50 MG, 2X/DAY
  7. CEPHALEXIN [Concomitant]
     Dosage: 500 MG, 4X/DAY

REACTIONS (6)
  - PROTEINURIA [None]
  - OBESITY [None]
  - DEATH [None]
  - HAEMATURIA [None]
  - FLANK PAIN [None]
  - PYURIA [None]
